FAERS Safety Report 6095696-5 (Version None)
Quarter: 2009Q1

REPORT INFORMATION
  Report Type: 
  Country: None (occurrence: None)
  Receive Date: 20090227
  Receipt Date: 20080523
  Transmission Date: 20090719
  Serious: No
  Sender: FDA-Public Use
  Company Number: A0729458A

PATIENT
  Age: 24 Year
  Sex: Female

DRUGS (2)
  1. LAMICTAL [Suspect]
     Indication: BIPOLAR II DISORDER
     Dosage: 100MG VARIABLE DOSE
     Route: 048
     Dates: start: 20071201
  2. IBUPROFEN [Concomitant]

REACTIONS (4)
  - ERYTHEMA [None]
  - MYODESOPSIA [None]
  - PYREXIA [None]
  - RASH MACULAR [None]
